FAERS Safety Report 10099982 (Version 2)
Quarter: 2014Q2

REPORT INFORMATION
  Report Type: Spontaneous
  Country: US (occurrence: US)
  Receive Date: 20140423
  Receipt Date: 20140423
  Transmission Date: 20141212
  Serious: No
  Sender: FDA-Public Use
  Company Number: US-MYLANLABS-2014S1000365

PATIENT
  Age: 32 Year
  Sex: Female
  Weight: 124.74 kg

DRUGS (3)
  1. RIZATRIPTAN BENZOATE ORALLY DISINTEGRATING TABLETS [Suspect]
     Indication: MIGRAINE
     Dosage: Q24 HRS PRN
     Route: 048
  2. NEXIUM [Concomitant]
  3. WELLBUTRIN [Concomitant]
     Dosage: WELLBUTRIN XL

REACTIONS (2)
  - Drug ineffective [Recovered/Resolved]
  - Migraine [Recovered/Resolved]
